FAERS Safety Report 8074938-0 (Version None)
Quarter: 2012Q1

REPORT INFORMATION
  Report Type: 
  Country: None (occurrence: None)
  Receive Date: 20120127
  Receipt Date: 20120116
  Transmission Date: 20120608
  Serious: Yes (Other)
  Sender: FDA-Public Use
  Company Number: FR-AMGEN-FRASP2011068441

PATIENT
  Age: 62 Year
  Sex: Female
  Weight: 102 kg

DRUGS (2)
  1. ENBREL [Suspect]
     Indication: PSORIASIS
     Dosage: 100 MG, WEEKLY
  2. ENBREL [Suspect]
     Indication: PSORIATIC ARTHROPATHY

REACTIONS (4)
  - SINUSITIS [None]
  - BRONCHITIS [None]
  - PHLEBITIS SUPERFICIAL [None]
  - UVEITIS [None]
